FAERS Safety Report 5300271-3 (Version None)
Quarter: 2007Q2

REPORT INFORMATION
  Report Type: 
  Country: None (occurrence: None)
  Receive Date: 20070418
  Receipt Date: 20070313
  Transmission Date: 20071010
  Serious: Yes (Other)
  Sender: FDA-Public Use
  Company Number: DE-BAYER-200712089GDS

PATIENT
  Age: 44 Year
  Sex: Male
  Weight: 92 kg

DRUGS (1)
  1. ACTIMAX (MOXIFLOXACIN) [Suspect]
     Indication: BRONCHITIS
     Dosage: UNIT DOSE: 400 MG
     Route: 065
     Dates: start: 20070306, end: 20070308

REACTIONS (1)
  - HYPERTENSIVE CRISIS [None]
